FAERS Safety Report 21734094 (Version 1)
Quarter: 2022Q4

REPORT INFORMATION
  Report Type: Spontaneous
  Country: DE (occurrence: DE)
  Receive Date: 20221215
  Receipt Date: 20221215
  Transmission Date: 20230112
  Serious: Yes (Death, Hospitalization, Other)
  Sender: FDA-Public Use
  Company Number: DE-AMGEN-DEUSP2022213651

PATIENT
  Age: 51 Year
  Sex: Female

DRUGS (7)
  1. FILGRASTIM [Suspect]
     Active Substance: FILGRASTIM
     Indication: Product used for unknown indication
     Dosage: 300 MICROGRAM, QD
     Route: 065
  2. CYTARABINE [Concomitant]
     Active Substance: CYTARABINE
     Indication: Acute myeloid leukaemia
     Dosage: UNK
  3. ISAVUCONAZOLE [Concomitant]
     Active Substance: ISAVUCONAZOLE
     Indication: Acute myeloid leukaemia
     Dosage: 200 MILLIGRAM, QD
  4. NIVOLUMAB [Concomitant]
     Active Substance: NIVOLUMAB
     Indication: Acute myeloid leukaemia
     Dosage: 240 MILLIGRAM
  5. FLUDARABINE [Concomitant]
     Active Substance: FLUDARABINE PHOSPHATE
     Indication: Acute myeloid leukaemia
     Dosage: UNK
  6. AZACITIDINE [Concomitant]
     Active Substance: AZACITIDINE
     Indication: Acute myeloid leukaemia
     Dosage: UNK
  7. LENALIDOMIDE [Concomitant]
     Active Substance: LENALIDOMIDE
     Indication: Acute myeloid leukaemia
     Dosage: UNK

REACTIONS (6)
  - Septic shock [Fatal]
  - Disseminated intravascular coagulation [Fatal]
  - Mucormycosis [Unknown]
  - Bone erosion [Unknown]
  - Acute myeloid leukaemia [Unknown]
  - Drug ineffective [Unknown]
